FAERS Safety Report 8850446 (Version 2)
Quarter: 2012Q4

REPORT INFORMATION
  Report Type: 
  Country: TR (occurrence: TR)
  Receive Date: 20121019
  Receipt Date: 20121107
  Transmission Date: 20130627
  Serious: Yes (Other)
  Sender: FDA-Public Use
  Company Number: TR-PFIZER INC-2012257412

PATIENT
  Age: 88 Year
  Sex: Female

DRUGS (4)
  1. TOVIAZ [Suspect]
     Indication: URINARY INCONTINENCE
     Dosage: 4 mg, 1x/day
  2. TOVIAZ [Suspect]
     Indication: POLLAKIURIA
  3. FLUDEX [Concomitant]
  4. DILTIAZEM [Concomitant]

REACTIONS (2)
  - Mouth haemorrhage [Recovered/Resolved]
  - Nausea [Recovered/Resolved]
